FAERS Safety Report 15195133 (Version 1)
Quarter: 2018Q3

REPORT INFORMATION
  Report Type: Spontaneous
  Country: NL (occurrence: NL)
  Receive Date: 20180725
  Receipt Date: 20180725
  Transmission Date: 20181010
  Serious: Yes (Other)
  Sender: FDA-Public Use
  Company Number: NL-PFIZER INC-2018294285

PATIENT
  Age: 65 Year
  Sex: Female
  Weight: 70 kg

DRUGS (5)
  1. NOVORAPID [Concomitant]
     Active Substance: INSULIN ASPART
     Dosage: 5 IU, 3X/DAY
     Route: 065
  2. SIMVASTATINE TEVA [Concomitant]
     Dosage: 20 MG, 1X/DAY
     Route: 065
  3. LEVETIRACETAM. [Suspect]
     Active Substance: LEVETIRACETAM
     Indication: EPILEPSY
     Dosage: 250 MG, 2X/DAY
     Route: 048
     Dates: start: 20180323
  4. TRESIBA [Concomitant]
     Active Substance: INSULIN DEGLUDEC
     Dosage: 10 IU, 1X/DAY
     Route: 065
  5. DEVARON [Concomitant]
     Dosage: 400 IU, UNK
     Route: 065

REACTIONS (2)
  - Disease recurrence [Not Recovered/Not Resolved]
  - Diabetes mellitus inadequate control [Not Recovered/Not Resolved]

NARRATIVE: CASE EVENT DATE: 20180324
